FAERS Safety Report 7217677-8 (Version None)
Quarter: 2010Q4

REPORT INFORMATION
  Report Type: 
  Country: None (occurrence: None)
  Receive Date: 20101230
  Receipt Date: 20101218
  Transmission Date: 20110411
  Serious: Yes (Other)
  Sender: FDA-Public Use
  Company Number: 10-149-3

PATIENT

DRUGS (5)
  1. CEFTRIAXONE [Suspect]
  2. PIPERACILLIN AND TAZOBACTAM [Suspect]
  3. VANCOMYCIN [Suspect]
  4. AMPICILLIN [Suspect]
  5. FLUCONAZOLE [Suspect]

REACTIONS (1)
  - DRUG RASH WITH EOSINOPHILIA AND SYSTEMIC SYMPTOMS [None]
